FAERS Safety Report 15641234 (Version 1)
Quarter: 2018Q4

REPORT INFORMATION
  Report Type: Other
  Country: US (occurrence: US)
  Receive Date: 20181120
  Receipt Date: 20181120
  Transmission Date: 20190205
  Serious: Yes (Hospitalization)
  Sender: FDA-Public Use
  Company Number: US-INTELLIPHARMACEUTICS CORP.-2059117

PATIENT
  Age: 74 Year
  Sex: Female

DRUGS (1)
  1. QUETIAPINE FUMARATE. [Suspect]
     Active Substance: QUETIAPINE FUMARATE
     Indication: BIPOLAR DISORDER
     Route: 065

REACTIONS (3)
  - Spinal fusion surgery [Unknown]
  - Mobility decreased [Unknown]
  - Urinary retention [Recovered/Resolved]
